FAERS Safety Report 9196715 (Version 1)
Quarter: 2013Q1

REPORT INFORMATION
  Report Type: Spontaneous
  Country: US (occurrence: US)
  Receive Date: 20130328
  Receipt Date: 20130328
  Transmission Date: 20140127
  Serious: Yes (Other)
  Sender: FDA-Public Use
  Company Number: US-AMGEN-USASP2013019523

PATIENT
  Age: 59 Year
  Sex: Female

DRUGS (3)
  1. PROLIA [Suspect]
     Indication: OSTEOPOROSIS POSTMENOPAUSAL
     Dosage: 60 MG, UNK
  2. MONODOX                            /00055701/ [Concomitant]
  3. THYROID PREPARATIONS [Concomitant]

REACTIONS (7)
  - Jaundice [Unknown]
  - Anaemia [Unknown]
  - Arthropod bite [Unknown]
  - Swelling [Unknown]
  - Scar [Unknown]
  - Fatigue [Unknown]
  - Back pain [Unknown]
